FAERS Safety Report 25925465 (Version 1)
Quarter: 2025Q4

REPORT INFORMATION
  Report Type: Report from Study
  Country: US (occurrence: US)
  Receive Date: 20251015
  Receipt Date: 20251015
  Transmission Date: 20260118
  Serious: Yes (Other)
  Sender: ABBVIE
  Company Number: US-ABBVIE-6490584

PATIENT
  Age: 74 Year
  Sex: Male

DRUGS (4)
  1. HUMIRA [Suspect]
     Active Substance: ADALIMUMAB
     Indication: Rheumatoid arthritis
     Dosage: FORM STRENGTH :80 MILLIGRAM?CITRATE FEE
     Route: 058
     Dates: start: 2017
  2. HUMIRA [Suspect]
     Active Substance: ADALIMUMAB
     Indication: Myasthenia gravis
  3. HUMIRA [Suspect]
     Active Substance: ADALIMUMAB
     Indication: Sarcoidosis
  4. Immunoglobulin [Concomitant]
     Indication: Myasthenia gravis
     Route: 042

REACTIONS (7)
  - Eyelid ptosis [Recovered/Resolved]
  - Dizziness [Not Recovered/Not Resolved]
  - Unevaluable event [Unknown]
  - Vomiting [Not Recovered/Not Resolved]
  - Diplopia [Unknown]
  - Dizziness [Not Recovered/Not Resolved]
  - Nausea [Not Recovered/Not Resolved]

NARRATIVE: CASE EVENT DATE: 20220101
